FAERS Safety Report 9079281 (Version 1)
Quarter: 2013Q1

REPORT INFORMATION
  Report Type: Report from Study
  Country: US (occurrence: US)
  Receive Date: 20130130
  Receipt Date: 20130130
  Transmission Date: 20140127
  Serious: No
  Sender: FDA-Public Use
  Company Number: US-ABBOTT-12P-163-0956334-00

PATIENT
  Age: 16 None
  Sex: Female

DRUGS (7)
  1. HUMIRA 40 MG/ 0.8 ML PRE-FILLED SYRINGE [Suspect]
     Indication: RHEUMATOID ARTHRITIS
     Route: 058
     Dates: start: 201206
  2. CALCIUM + VITAMIN D [Concomitant]
     Indication: PRODUCT USED FOR UNKNOWN INDICATION
  3. CVS FISH OIL CONCENTRATE CP [Concomitant]
     Indication: PRODUCT USED FOR UNKNOWN INDICATION
  4. VITAMIN B COMPLEX WITH FOLIC ACID [Concomitant]
     Indication: PRODUCT USED FOR UNKNOWN INDICATION
  5. METHOTREXATE [Concomitant]
     Indication: RHEUMATOID ARTHRITIS
     Dosage: WEEKLY
  6. PREDNISONE [Concomitant]
     Indication: RHEUMATOID ARTHRITIS
  7. ALBUTEROL [Concomitant]
     Indication: ASTHMA

REACTIONS (5)
  - Incorrect route of drug administration [Recovered/Resolved]
  - Injection site pain [Unknown]
  - Injection site pain [Unknown]
  - Incorrect route of drug administration [Recovered/Resolved]
  - Injection site bruising [None]
